FAERS Safety Report 18633619 (Version 2)
Quarter: 2021Q1

REPORT INFORMATION
  Report Type: Spontaneous
  Country: CO (occurrence: CO)
  Receive Date: 20201218
  Receipt Date: 20210108
  Transmission Date: 20210419
  Serious: Yes (Hospitalization)
  Sender: FDA-Public Use
  Company Number: CO-PFIZER INC-2020497007

PATIENT
  Age: 81 Year
  Sex: Female

DRUGS (1)
  1. XELJANZ XR [Suspect]
     Active Substance: TOFACITINIB CITRATE
     Indication: RHEUMATOID ARTHRITIS
     Dosage: 11 MG
     Route: 048
     Dates: start: 2020, end: 2020

REACTIONS (4)
  - Pancreatitis [Unknown]
  - Tension [Unknown]
  - Pancreatolithiasis [Not Recovered/Not Resolved]
  - Pyrexia [Unknown]
